FAERS Safety Report 4776590-6 (Version None)
Quarter: 2005Q3

REPORT INFORMATION
  Report Type: 
  Country: None (occurrence: None)
  Receive Date: 20050915
  Receipt Date: 20050907
  Transmission Date: 20060218
  Serious: Yes (Death, Other)
  Sender: FDA-Public Use
  Company Number: 2005104879

PATIENT
  Age: 57 Year
  Sex: Female

DRUGS (3)
  1. LYRICA [Suspect]
     Indication: NEUROPATHIC PAIN
     Dosage: 75 MG (75 MG, 1 IN 1 D), ORAL
     Route: 048
     Dates: start: 20050515, end: 20050718
  2. TRAMADOL HCL [Concomitant]
  3. PREDNISOLONE [Concomitant]

REACTIONS (10)
  - BACTERIAL INFECTION [None]
  - CONFUSIONAL STATE [None]
  - DRUG EFFECT DECREASED [None]
  - FUNGAL INFECTION [None]
  - MEDICATION ERROR [None]
  - MYOCLONUS [None]
  - NEUROLEPTIC MALIGNANT SYNDROME [None]
  - OVERDOSE [None]
  - RENAL FAILURE [None]
  - SEPSIS [None]
